FAERS Safety Report 6304976-7 (Version None)
Quarter: 2009Q3

REPORT INFORMATION
  Report Type: 
  Country: None (occurrence: None)
  Receive Date: 20090811
  Receipt Date: 20090807
  Transmission Date: 20100115
  Serious: Yes (Other)
  Sender: FDA-Public Use
  Company Number: US-MERCK-0908USA01129

PATIENT
  Sex: Male

DRUGS (1)
  1. VYTORIN [Suspect]
     Indication: BLOOD CHOLESTEROL
     Route: 048
     Dates: start: 20040801, end: 20040801

REACTIONS (4)
  - ASTHENIA [None]
  - CARDIAC DISORDER [None]
  - CEREBROVASCULAR ACCIDENT [None]
  - MUSCLE SPASMS [None]
